FAERS Safety Report 14350776 (Version 3)
Quarter: 2018Q1

REPORT INFORMATION
  Report Type: Spontaneous
  Country: US (occurrence: US)
  Receive Date: 20180104
  Receipt Date: 20180126
  Transmission Date: 20180509
  Serious: Yes (Hospitalization)
  Sender: FDA-Public Use
  Company Number: US-GLAXOSMITHKLINE-US2018000323

PATIENT
  Age: 62 Year
  Sex: Male

DRUGS (13)
  1. NUCALA [Suspect]
     Active Substance: MEPOLIZUMAB
     Indication: ASTHMA
     Dosage: UNK UNK, CYC
     Route: 042
     Dates: start: 201701
  2. ASMANEX [Concomitant]
     Active Substance: MOMETASONE FUROATE
  3. CALCIUM [Concomitant]
     Active Substance: CALCIUM
  4. PREDNISONE. [Concomitant]
     Active Substance: PREDNISONE
  5. XANAX [Concomitant]
     Active Substance: ALPRAZOLAM
  6. FUROSEMIDE. [Concomitant]
     Active Substance: FUROSEMIDE
  7. SINGULAIR [Concomitant]
     Active Substance: MONTELUKAST SODIUM
  8. COD LIVER OIL [Concomitant]
     Active Substance: COD LIVER OIL
  9. FLUCONAZOLE. [Concomitant]
     Active Substance: FLUCONAZOLE
  10. POTASSIUM CHLORIDE. [Concomitant]
     Active Substance: POTASSIUM CHLORIDE
  11. XYZAL [Concomitant]
     Active Substance: LEVOCETIRIZINE DIHYDROCHLORIDE
  12. STIOLTO RESPIMAT [Concomitant]
     Active Substance: OLODATEROL HYDROCHLORIDE\TIOTROPIUM BROMIDE MONOHYDRATE
  13. AMOXIL K [Concomitant]

REACTIONS (7)
  - Pain in jaw [Recovering/Resolving]
  - Urticaria [Recovered/Resolved]
  - Swelling face [Unknown]
  - Lymphadenopathy [Recovering/Resolving]
  - Mouth swelling [Unknown]
  - Spinal osteoarthritis [Not Recovered/Not Resolved]
  - Lymph node pain [Recovering/Resolving]

NARRATIVE: CASE EVENT DATE: 201712
